FAERS Safety Report 4656922-X (Version None)
Quarter: 2005Q2

REPORT INFORMATION
  Report Type: 
  Country: None (occurrence: None)
  Receive Date: 20050506
  Receipt Date: 20050502
  Transmission Date: 20051028
  Serious: Yes (Hospitalization)
  Sender: FDA-Public Use
  Company Number: 05US000682

PATIENT
  Age: 46 Year
  Sex: Male

DRUGS (12)
  1. LITHIUM CARBONATE [Suspect]
     Indication: SCHIZOAFFECTIVE DISORDER
     Dosage: SEE IMAGE
     Dates: start: 20040209, end: 20040419
  2. LITHIUM CARBONATE [Suspect]
     Indication: SCHIZOAFFECTIVE DISORDER
     Dosage: SEE IMAGE
     Dates: start: 20050419, end: 20040810
  3. LITHIUM CARBONATE [Suspect]
     Indication: SCHIZOAFFECTIVE DISORDER
     Dosage: SEE IMAGE
     Dates: start: 20040810, end: 20041026
  4. FOSINOPRIL SODIUM [Concomitant]
  5. LISINOPRIL [Concomitant]
  6. HALOPERIDOL [Concomitant]
  7. BENZTROPINE [Concomitant]
  8. OLANZAPINE (OLANZAPINE) [Concomitant]
  9. CLONAZEPAM [Concomitant]
  10. DIVALPROEX SODIUM [Concomitant]
  11. SIMVASTATIN [Concomitant]
  12. ATENOLOL [Concomitant]

REACTIONS (8)
  - BLOOD CREATININE INCREASED [None]
  - BLOOD POTASSIUM INCREASED [None]
  - BRADYCARDIA [None]
  - SALIVARY HYPERSECRETION [None]
  - SEDATION [None]
  - THERAPEUTIC AGENT TOXICITY [None]
  - TREATMENT NONCOMPLIANCE [None]
  - TREMOR [None]
